FAERS Safety Report 24577738 (Version 1)
Quarter: 2024Q4

REPORT INFORMATION
  Report Type: Report from Study
  Country: PH (occurrence: PH)
  Receive Date: 20241104
  Receipt Date: 20241104
  Transmission Date: 20250114
  Serious: Yes (Hospitalization)
  Sender: OTSUKA
  Company Number: PH-OTSUKA-2024_022114

PATIENT
  Age: 66 Year
  Sex: Male

DRUGS (1)
  1. TOLVAPTAN [Suspect]
     Active Substance: TOLVAPTAN
     Indication: Renal disorder
     Dosage: 0.25 DF, QD (15MG 1/4 TABLET A DAY)
     Route: 048
     Dates: start: 2023

REACTIONS (4)
  - Oral pruritus [Recovered/Resolved]
  - Troponin I increased [Unknown]
  - Wrong technique in product usage process [Unknown]
  - Underdose [Unknown]

NARRATIVE: CASE EVENT DATE: 20240901
